FAERS Safety Report 6423273-2 (Version None)
Quarter: 2009Q4

REPORT INFORMATION
  Report Type: 
  Country: None (occurrence: None)
  Receive Date: 20091102
  Receipt Date: 20091029
  Transmission Date: 20100525
  Serious: Yes (Death, Other)
  Sender: FDA-Public Use
  Company Number: US-ROXANE LABORATORIES, INC.-2009-RO-01113RO

PATIENT
  Sex: Male

DRUGS (5)
  1. PREDNISONE [Suspect]
     Indication: IRITIS
  2. METHOTREXATE [Suspect]
     Indication: ANKYLOSING SPONDYLITIS
     Dates: start: 20000301
  3. LISINOPRIL [Suspect]
     Indication: HYPERTENSION
  4. HYDROCHLOROTHIAZIDE [Suspect]
     Indication: HYPERTENSION
  5. REMICADE [Suspect]

REACTIONS (9)
  - ANKYLOSING SPONDYLITIS [None]
  - ARTERIOSCLEROSIS [None]
  - BACK PAIN [None]
  - C-REACTIVE PROTEIN ABNORMAL [None]
  - CORONARY ARTERY THROMBOSIS [None]
  - HYPERTENSION [None]
  - IRITIS [None]
  - MUSCULOSKELETAL PAIN [None]
  - NECK PAIN [None]
